FAERS Safety Report 7893253-9 (Version None)
Quarter: 2011Q4

REPORT INFORMATION
  Report Type: 
  Country: None (occurrence: None)
  Receive Date: 20111104
  Receipt Date: 20111102
  Transmission Date: 20120403
  Serious: Yes (Death)
  Sender: FDA-Public Use
  Company Number: PHEH2011US08438

PATIENT
  Sex: Female

DRUGS (4)
  1. EXJADE [Suspect]
     Indication: NEOPLASM
     Dosage: 2000 MG, DAILY
     Route: 048
     Dates: start: 20061219
  2. DESIPRAMIDE HCL [Concomitant]
  3. LIPITOR [Concomitant]
  4. PLAVIX [Concomitant]

REACTIONS (1)
  - DEATH [None]
